FAERS Safety Report 4647891-7 (Version None)
Quarter: 2005Q2

REPORT INFORMATION
  Report Type: 
  Country: None (occurrence: None)
  Receive Date: 20050426
  Receipt Date: 20050408
  Transmission Date: 20051028
  Serious: Yes (Other)
  Sender: FDA-Public Use
  Company Number: 1785

PATIENT
  Age: 68 Year
  Sex: Male

DRUGS (4)
  1. AVINZA [Suspect]
     Indication: PAIN
     Dosage: 120 MG QD PO
     Route: 048
     Dates: start: 20050301, end: 20050301
  2. DIAZEPAM [Concomitant]
  3. MODAFINIL [Concomitant]
  4. OXYCODONE IMMEDIATE RELEASE [Concomitant]

REACTIONS (2)
  - DRUG INTOLERANCE [None]
  - OVERDOSE [None]
